FAERS Safety Report 20797058 (Version 3)
Quarter: 2022Q4

REPORT INFORMATION
  Report Type: Report from Study
  Country: US (occurrence: US)
  Receive Date: 20220506
  Receipt Date: 20221102
  Transmission Date: 20230113
  Serious: Yes (Hospitalization)
  Sender: FDA-Public Use
  Company Number: US-ABBVIE-22K-163-4382964-00

PATIENT
  Sex: Female

DRUGS (5)
  1. SKYRIZI [Suspect]
     Active Substance: RISANKIZUMAB-RZAA
     Indication: Psoriasis
     Route: 058
     Dates: start: 202210
  2. SKYRIZI [Suspect]
     Active Substance: RISANKIZUMAB-RZAA
     Dosage: WEEK 0
     Route: 058
     Dates: start: 2021, end: 2021
  3. SKYRIZI [Suspect]
     Active Substance: RISANKIZUMAB-RZAA
     Dosage: WEEK 4
     Route: 058
     Dates: start: 2021, end: 2021
  4. SKYRIZI [Suspect]
     Active Substance: RISANKIZUMAB-RZAA
     Route: 058
     Dates: start: 20211031, end: 202210
  5. COVID-19 VACCINE [Concomitant]
     Indication: COVID-19 immunisation
     Dosage: TIME INTERVAL: 1 TOTAL
     Route: 030

REACTIONS (9)
  - Animal bite [Unknown]
  - Gait disturbance [Unknown]
  - Infection [Recovering/Resolving]
  - Localised infection [Recovering/Resolving]
  - Pain [Unknown]
  - Ear pain [Unknown]
  - Psoriasis [Unknown]
  - Pruritus [Unknown]
  - Visual impairment [Unknown]

NARRATIVE: CASE EVENT DATE: 20220101
